FAERS Safety Report 6399919-4 (Version None)
Quarter: 2009Q4

REPORT INFORMATION
  Report Type: 
  Country: None (occurrence: None)
  Receive Date: 20091014
  Receipt Date: 20091013
  Transmission Date: 20100525
  Serious: Yes (Hospitalization)
  Sender: FDA-Public Use
  Company Number: IT-WYE-G04243809

PATIENT
  Sex: Male

DRUGS (4)
  1. EFFEXOR [Suspect]
     Route: 048
     Dates: start: 20090125
  2. LORAZEPAM [Concomitant]
  3. DIAMICRON [Concomitant]
  4. SERENASE [Suspect]
     Route: 048
     Dates: start: 20090125

REACTIONS (4)
  - ASTHENIA [None]
  - BALANCE DISORDER [None]
  - HYPERTENSION [None]
  - PARKINSONISM [None]
